FAERS Safety Report 25691744 (Version 2)
Quarter: 2025Q3

REPORT INFORMATION
  Report Type: Spontaneous
  Country: US (occurrence: US)
  Receive Date: 20250818
  Receipt Date: 20250929
  Transmission Date: 20251021
  Serious: Yes (Hospitalization, Other)
  Sender: INCYTE
  Company Number: US-INCYTE CORPORATION-2025IN008991

PATIENT
  Age: 71 Year

DRUGS (17)
  1. JAKAFI [Suspect]
     Active Substance: RUXOLITINIB
     Indication: Product used for unknown indication
     Route: 065
  2. JAKAFI [Suspect]
     Active Substance: RUXOLITINIB
     Dosage: 10 MILLIGRAM, BID
  3. PELABRESIB [Suspect]
     Active Substance: PELABRESIB
     Indication: Myelofibrosis
  4. PELABRESIB [Suspect]
     Active Substance: PELABRESIB
  5. PELABRESIB [Suspect]
     Active Substance: PELABRESIB
  6. PELABRESIB [Suspect]
     Active Substance: PELABRESIB
  7. PELABRESIB [Suspect]
     Active Substance: PELABRESIB
  8. PELABRESIB [Suspect]
     Active Substance: PELABRESIB
  9. PELABRESIB [Suspect]
     Active Substance: PELABRESIB
  10. PELABRESIB [Suspect]
     Active Substance: PELABRESIB
  11. PELABRESIB [Suspect]
     Active Substance: PELABRESIB
  12. PELABRESIB [Suspect]
     Active Substance: PELABRESIB
     Route: 065
  13. ACETAMINOPHEN [Concomitant]
     Active Substance: ACETAMINOPHEN
     Indication: Pyrexia
     Dosage: 650 MILLIGRAM, Q4H PRN
  14. ACETAMINOPHEN [Concomitant]
     Active Substance: ACETAMINOPHEN
     Indication: Pain
  15. ALLOPURINOL SODIUM [Concomitant]
     Active Substance: ALLOPURINOL SODIUM
     Indication: Prophylaxis
     Dosage: 300 MILLIGRAM, QD
     Route: 065
  16. ENOXAPARIN SODIUM [Concomitant]
     Active Substance: ENOXAPARIN SODIUM
     Indication: Prophylaxis
     Dosage: 40 MILLIGRAM, QD
  17. METOPROLOL TARTRATE [Concomitant]
     Active Substance: METOPROLOL TARTRATE
     Indication: Hypertension
     Dosage: 12.5 MILLIGRAM, BID

REACTIONS (1)
  - Cardiac failure congestive [Recovered/Resolved]
